FAERS Safety Report 6818295-3 (Version None)
Quarter: 2010Q3

REPORT INFORMATION
  Report Type: 
  Country: None (occurrence: None)
  Receive Date: 20100706
  Receipt Date: 20070822
  Transmission Date: 20110219
  Serious: No
  Sender: FDA-Public Use
  Company Number: US-PFIZER INC-2007050659

PATIENT
  Sex: Male
  Weight: 77 kg

DRUGS (1)
  1. ZITHROMAX [Suspect]
     Indication: INFECTION
     Dates: start: 20060901, end: 20060901

REACTIONS (4)
  - ABNORMAL FAECES [None]
  - ANORECTAL DISORDER [None]
  - RASH [None]
  - SKIN IRRITATION [None]
